APPROVED DRUG PRODUCT: HALOPERIDOL DECANOATE
Active Ingredient: HALOPERIDOL DECANOATE
Strength: EQ 100MG BASE/ML
Dosage Form/Route: INJECTABLE;INJECTION
Application: A075305 | Product #001 | TE Code: AO
Applicant: HIKMA PHARMACEUTICALS USA INC
Approved: Sep 28, 1998 | RLD: No | RS: No | Type: RX